FAERS Safety Report 4538689-9 (Version None)
Quarter: 2004Q4

REPORT INFORMATION
  Report Type: 
  Country: None (occurrence: None)
  Receive Date: 20041222
  Receipt Date: 20041203
  Transmission Date: 20050328
  Serious: Yes (Other)
  Sender: FDA-Public Use
  Company Number: PAR COMPLAINT # 04-319

PATIENT
  Age: 8 Year
  Sex: Male

DRUGS (7)
  1. NIFEDIPINE (NIFEDIPINE) [Suspect]
  2. IBUPROFEN [Suspect]
     Indication: HEMIPLEGIA
  3. PHENYTOIN [Suspect]
     Indication: HEMIPLEGIA
  4. CARBAMAZEPINE [Suspect]
     Indication: HEMIPLEGIA
  5. VALPROATE SODIUM [Suspect]
     Indication: HEMIPLEGIA
  6. FLUNARIZINE (FLUNARIZINE) [Suspect]
     Indication: HEMIPLEGIA
  7. INSULIN [Concomitant]

REACTIONS (14)
  - AGGRESSION [None]
  - ANGER [None]
  - APHASIA [None]
  - CONVULSION [None]
  - DEPRESSION [None]
  - DIABETES MELLITUS INSULIN-DEPENDENT [None]
  - ELECTROENCEPHALOGRAM ABNORMAL [None]
  - HEADACHE [None]
  - HYPOGLYCAEMIA [None]
  - MENTAL DISORDER [None]
  - MIGRAINE [None]
  - PSYCHOMOTOR HYPERACTIVITY [None]
  - SUICIDAL IDEATION [None]
  - VOMITING [None]
